FAERS Safety Report 8622719-9 (Version None)
Quarter: 2012Q3

REPORT INFORMATION
  Report Type: 
  Country: None (occurrence: None)
  Receive Date: 20120827
  Receipt Date: 20120816
  Transmission Date: 20120928
  Serious: Yes (Other)
  Sender: FDA-Public Use
  Company Number: CA-JNJFOC-20120808423

PATIENT
  Sex: Female
  Weight: 58.1 kg

DRUGS (1)
  1. REMICADE [Suspect]
     Indication: ANKYLOSING SPONDYLITIS
     Route: 042
     Dates: start: 20050220

REACTIONS (4)
  - EYE INJURY [None]
  - EYE OEDEMA [None]
  - HEAD INJURY [None]
  - FALL [None]
